FAERS Safety Report 13151170 (Version 2)
Quarter: 2017Q1

REPORT INFORMATION
  Report Type: Spontaneous
  Country: IT (occurrence: IT)
  Receive Date: 20170125
  Receipt Date: 20170227
  Transmission Date: 20170428
  Serious: Yes (Hospitalization)
  Sender: FDA-Public Use
  Company Number: IT-TEVA-732876ACC

PATIENT
  Age: 22 Year
  Sex: Female

DRUGS (3)
  1. DEPAKIN CHRONO - 300 MG COMPRESSE RIVESTITE - SANOFI S.P.A. [Suspect]
     Active Substance: VALPROATE SODIUM
     Indication: DEPRESSION
     Dosage: 3 G TOTAL
     Route: 048
     Dates: start: 20170110, end: 20170110
  2. ESCITALOPRAM OXALATE. [Suspect]
     Active Substance: ESCITALOPRAM OXALATE
     Indication: DEPRESSION
     Dosage: 400 MG TOTAL
     Route: 048
     Dates: start: 20170110, end: 20170110
  3. LEXOTAN - ROCHE S.P.A. [Suspect]
     Active Substance: BROMAZEPAM
     Indication: ANXIETY
     Dosage: 25 MG TOTAL
     Route: 048
     Dates: start: 20170110, end: 20170110

REACTIONS (3)
  - Intentional self-injury [Unknown]
  - Sopor [Recovering/Resolving]
  - Overdose [Unknown]

NARRATIVE: CASE EVENT DATE: 20170110
